FAERS Safety Report 4531610-9 (Version None)
Quarter: 2004Q4

REPORT INFORMATION
  Report Type: 
  Country: None (occurrence: None)
  Receive Date: 20041217
  Receipt Date: 20041217
  Transmission Date: 20050328
  Serious: Yes (Other)
  Sender: FDA-Public Use
  Company Number: None

PATIENT
  Age: 67 Year
  Sex: Female
  Weight: 70.3075 kg

DRUGS (4)
  1. OMEPRAZOLE [Suspect]
     Indication: ULCER
     Dosage: 2 CAPS PO DAILY
     Route: 048
     Dates: start: 20041107, end: 20041121
  2. PREMARIN [Concomitant]
  3. CYCLOBENZAPRINE [Concomitant]
  4. LOVASTATIN [Concomitant]

REACTIONS (4)
  - DRUG EFFECT DECREASED [None]
  - GASTROOESOPHAGEAL REFLUX DISEASE [None]
  - NAUSEA [None]
  - PHARMACEUTICAL PRODUCT COMPLAINT [None]
